FAERS Safety Report 20219064 (Version 2)
Quarter: 2022Q1

REPORT INFORMATION
  Report Type: Report from Study
  Country: BR (occurrence: BR)
  Receive Date: 20211222
  Receipt Date: 20220218
  Transmission Date: 20220423
  Serious: Yes (Other)
  Sender: FDA-Public Use
  Company Number: BR-UCBSA-2021058361

PATIENT
  Age: 25 Year
  Sex: Female
  Weight: 80 kg

DRUGS (5)
  1. CERTOLIZUMAB PEGOL [Suspect]
     Active Substance: CERTOLIZUMAB PEGOL
     Indication: Ankylosing spondylitis
     Dosage: 400 MILLIGRAM, EV 4 WEEKS
     Route: 058
     Dates: start: 201910
  2. CERTOLIZUMAB PEGOL [Suspect]
     Active Substance: CERTOLIZUMAB PEGOL
     Indication: Rheumatoid arthritis
  3. AZULFIDINE [Concomitant]
     Active Substance: SULFASALAZINE
     Indication: Immunomodulatory therapy
     Dosage: UNK
     Route: 048
     Dates: start: 2019
  4. DUAL [DULOXETINE HYDROCHLORIDE] [Concomitant]
     Indication: Pain
     Dosage: UNK
     Route: 048
     Dates: start: 2020
  5. CYCLOBENZAPRINE HYDROCHLORIDE [Concomitant]
     Active Substance: CYCLOBENZAPRINE HYDROCHLORIDE
     Indication: Muscle relaxant therapy
     Dosage: UNK
     Route: 048
     Dates: start: 2019

REACTIONS (3)
  - Haemorrhagic fever [Not Recovered/Not Resolved]
  - C-reactive protein increased [Unknown]
  - Red blood cell sedimentation rate increased [Unknown]

NARRATIVE: CASE EVENT DATE: 20211101
